FAERS Safety Report 5833206-5 (Version None)
Quarter: 2008Q3

REPORT INFORMATION
  Report Type: 
  Country: None (occurrence: None)
  Receive Date: 20080731
  Receipt Date: 20080716
  Transmission Date: 20090109
  Serious: Yes (Life-Threatening, Disabling, Other)
  Sender: FDA-Public Use
  Company Number: 2008AL004656

PATIENT
  Age: 60 Year
  Sex: Male
  Weight: 69.4003 kg

DRUGS (22)
  1. DIGOXIN [Suspect]
     Indication: CORONARY ARTERY DISEASE
     Dosage: 0.25MG DAILY PO
     Route: 048
  2. ALLOPURINOL [Concomitant]
  3. AMBIEN [Concomitant]
  4. ASPIRIN [Concomitant]
  5. BYETTA [Concomitant]
  6. COLCHICINE [Concomitant]
  7. FORADIL [Concomitant]
  8. GABAPENTIN [Concomitant]
  9. GEMFIBROZIL [Concomitant]
  10. IMDUR [Concomitant]
  11. KEPPRA [Concomitant]
  12. LASIX [Concomitant]
  13. METFORMIN HCL [Concomitant]
  14. METOLAZONE [Concomitant]
  15. METOPROLOL SUCCINATE [Concomitant]
  16. NITROGLYCERIN [Concomitant]
  17. PEROXITINE HCL [Concomitant]
  18. PROBINISIDE [Concomitant]
  19. PREDNISONE TAB [Concomitant]
  20. REQUIP [Concomitant]
  21. SIMVASTATIN [Concomitant]
  22. POTASSIUM CHLORIDE [Concomitant]

REACTIONS (4)
  - CARDIAC FAILURE CONGESTIVE [None]
  - RESPIRATORY DISTRESS [None]
  - URTICARIA [None]
  - WEIGHT DECREASED [None]
